FAERS Safety Report 13097773 (Version 2)
Quarter: 2017Q1

REPORT INFORMATION
  Report Type: Spontaneous
  Country: US (occurrence: US)
  Receive Date: 20170109
  Receipt Date: 20170216
  Transmission Date: 20170428
  Serious: Yes (Other)
  Sender: FDA-Public Use
  Company Number: US-ASTELLAS-2017US000709

PATIENT
  Age: 55 Year
  Sex: Female

DRUGS (24)
  1. ADVAIR HFA [Concomitant]
     Active Substance: FLUTICASONE PROPIONATE\SALMETEROL XINAFOATE
     Indication: PRODUCT USED FOR UNKNOWN INDICATION
     Dosage: 500-50 MCG/DOSE DISKUS INHALER,  INHALE 1 PUFF BY MOUTH, EVERY 12 HOURS
     Route: 055
  2. GLUCOPHAGE [Concomitant]
     Active Substance: METFORMIN HYDROCHLORIDE
     Indication: PRODUCT USED FOR UNKNOWN INDICATION
     Route: 048
  3. ZYPREXA [Concomitant]
     Active Substance: OLANZAPINE
     Indication: PRODUCT USED FOR UNKNOWN INDICATION
     Route: 048
  4. BENADRYL [Suspect]
     Active Substance: DIPHENHYDRAMINE HYDROCHLORIDE
     Indication: PRURITUS
     Dosage: UNK, UNKNOWN FREQ.
     Route: 042
  5. LEVEMIR [Concomitant]
     Active Substance: INSULIN DETEMIR
     Indication: PRODUCT USED FOR UNKNOWN INDICATION
     Dosage: 100 UNIT/ML, 3 ML FLEXTOUCH PEN, 45 UNITS, TWICE DAILY
     Route: 058
  6. PRINIVIL [Concomitant]
     Active Substance: LISINOPRIL
     Indication: PRODUCT USED FOR UNKNOWN INDICATION
     Route: 048
  7. NOLVADEX                           /00388701/ [Concomitant]
     Active Substance: TAMOXIFEN CITRATE
     Indication: PRODUCT USED FOR UNKNOWN INDICATION
     Route: 048
  8. DUONEB [Concomitant]
     Active Substance: ALBUTEROL SULFATE\IPRATROPIUM BROMIDE
     Indication: PRODUCT USED FOR UNKNOWN INDICATION
     Dosage: (2.5-0.5 MG) IN 3 ML NEBULIZATION SOLUTION, INHALE 1 NEB VIA NEBULIZER 4 TIMES DAILY, IF NEEDED
     Route: 065
  9. NEURONTIN [Concomitant]
     Active Substance: GABAPENTIN
     Indication: PRODUCT USED FOR UNKNOWN INDICATION
     Route: 048
  10. LEXISCAN [Suspect]
     Active Substance: REGADENOSON
     Indication: POSITRON EMISSION TOMOGRAM
     Dosage: UNK UNK, UNKNOWN FREQ.
     Route: 065
     Dates: start: 20170104, end: 20170104
  11. XANAX [Concomitant]
     Active Substance: ALPRAZOLAM
     Indication: PRODUCT USED FOR UNKNOWN INDICATION
     Dosage: 0.5 MG, ONCE DAILY
     Route: 048
  12. ASPIRIN. [Concomitant]
     Active Substance: ASPIRIN
     Indication: PRODUCT USED FOR UNKNOWN INDICATION
     Dosage: 81 MG, ONCE DAILY WITH A MEAL
     Route: 048
  13. PRILOSEC [Concomitant]
     Active Substance: OMEPRAZOLE MAGNESIUM
     Indication: PRODUCT USED FOR UNKNOWN INDICATION
     Dosage: 20 MG, ONCE DAILY BEFORE A MEAL
     Route: 048
  14. PERCOCET [Concomitant]
     Active Substance: ACETAMINOPHEN\OXYCODONE HYDROCHLORIDE
     Indication: PAIN
     Dosage: 1 DF, EVERY 8 HOURS,AS NEEDED
     Route: 048
  15. ALBUTEROL HFA [Concomitant]
     Active Substance: ALBUTEROL SULFATE
     Indication: PRODUCT USED FOR UNKNOWN INDICATION
     Dosage: 90 MCG/ACTUATION INHLAER, INHALE 1-2 PUFFS BY MOUTH EVERY 4 HOURS, IF NEEDED
     Route: 055
  16. NOVOLOG [Concomitant]
     Active Substance: INSULIN ASPART
     Indication: PRODUCT USED FOR UNKNOWN INDICATION
     Dosage: 100 UNITS/ML SOLUTION FOR INJECTION, 35 UNITS BEFORE BREAKFAST AND LUNCH, 45 UNITS BEFORE DINNER
     Route: 058
  17. ZESTRIL [Concomitant]
     Active Substance: LISINOPRIL
     Indication: PRODUCT USED FOR UNKNOWN INDICATION
     Route: 048
  18. LASIX [Concomitant]
     Active Substance: FUROSEMIDE
     Indication: PRODUCT USED FOR UNKNOWN INDICATION
     Dosage: 20 MG, EVERY MORNING
     Route: 048
  19. ATARAX [Concomitant]
     Active Substance: HYDROXYZINE HYDROCHLORIDE
     Indication: PRURITUS
     Dosage: 1-2 TABLETS (50-100 MG), DAILY AS NEEDED
     Route: 065
  20. IMDUR [Concomitant]
     Active Substance: ISOSORBIDE MONONITRATE
     Indication: PRODUCT USED FOR UNKNOWN INDICATION
     Dosage: 60 MG EXTENDED RELEASE TABLET, 24 HOURS, ONCE DAILY
     Route: 048
  21. LOPRESSOR [Concomitant]
     Active Substance: METOPROLOL TARTRATE
     Indication: PRODUCT USED FOR UNKNOWN INDICATION
     Route: 048
  22. OXYCONTIN [Concomitant]
     Active Substance: OXYCODONE HYDROCHLORIDE
     Indication: PRODUCT USED FOR UNKNOWN INDICATION
     Route: 048
  23. ALBUTEROL                          /00139501/ [Suspect]
     Active Substance: ALBUTEROL
     Indication: DYSPNOEA
     Dosage: UNK, UNKNOWN FREQ. NEBULIZER
     Route: 065
  24. ANTIVERT                           /00007101/ [Concomitant]
     Active Substance: MECLIZINE MONOHYDROCHLORIDE\NIACIN
     Indication: PRODUCT USED FOR UNKNOWN INDICATION
     Dosage: 12.5 MG, 3 TIMES DAILY, AS NEEDED
     Route: 048

REACTIONS (4)
  - Pruritus [Not Recovered/Not Resolved]
  - Dyspnoea [Not Recovered/Not Resolved]
  - Blood pressure decreased [Recovering/Resolving]
  - Urticaria [Not Recovered/Not Resolved]

NARRATIVE: CASE EVENT DATE: 20170104
